FAERS Safety Report 4632210-2 (Version None)
Quarter: 2005Q2

REPORT INFORMATION
  Report Type: 
  Country: None (occurrence: None)
  Receive Date: 20050331
  Receipt Date: 20040723
  Transmission Date: 20051028
  Serious: Yes (Other)
  Sender: FDA-Public Use
  Company Number: 200413654BCC

PATIENT
  Age: 22 Year
  Sex: Female
  Weight: 61.2356 kg

DRUGS (1)
  1. ALEVE (CAPLET) [Suspect]
     Indication: MUSCLE SPASMS
     Dosage: 440 MG ONCE ORAL
     Route: 048
     Dates: start: 20040722

REACTIONS (5)
  - ANAPHYLACTIC REACTION [None]
  - PRURITUS [None]
  - PYREXIA [None]
  - SWOLLEN TONGUE [None]
  - THROAT TIGHTNESS [None]
